FAERS Safety Report 13428855 (Version 3)
Quarter: 2017Q3

REPORT INFORMATION
  Report Type: Spontaneous
  Country: DE (occurrence: DE)
  Receive Date: 20170411
  Receipt Date: 20170717
  Transmission Date: 20171127
  Serious: Yes (Other)
  Sender: FDA-Public Use
  Company Number: DE-SA-2017SA060437

PATIENT
  Sex: Female
  Weight: 52 kg

DRUGS (1)
  1. FEXOFENADINE [Suspect]
     Active Substance: FEXOFENADINE\FEXOFENADINE HYDROCHLORIDE
     Indication: HYPERSENSITIVITY
     Dosage: INTAKE ONCE DAILY IN THE MORNING
     Route: 065

REACTIONS (19)
  - Dysgeusia [Unknown]
  - Angina pectoris [Unknown]
  - Abdominal pain upper [Unknown]
  - Dry mouth [Unknown]
  - Somnolence [Unknown]
  - Gastrointestinal sounds abnormal [Unknown]
  - Nervousness [Unknown]
  - Asthenia [Unknown]
  - Diarrhoea [Unknown]
  - Fatigue [Unknown]
  - Headache [Unknown]
  - Insomnia [Unknown]
  - Vomiting [Unknown]
  - Dizziness [Unknown]
  - Nausea [Unknown]
  - Nightmare [Unknown]
  - Arrhythmia [Unknown]
  - Ear discomfort [Unknown]
  - Crying [Unknown]
